FAERS Safety Report 18328467 (Version 1)
Quarter: 2020Q3

REPORT INFORMATION
  Report Type: Spontaneous
  Country: DE (occurrence: DE)
  Receive Date: 20200930
  Receipt Date: 20200930
  Transmission Date: 20201103
  Serious: Yes (Hospitalization)
  Sender: FDA-Public Use
  Company Number: DE-SUN PHARMACEUTICAL INDUSTRIES LTD-2020RR-262472

PATIENT
  Age: 15 Year
  Sex: Female
  Weight: 39 kg

DRUGS (6)
  1. L?THYROXIN [LEVOTHYROXIN SODIUM] [Suspect]
     Active Substance: LEVOTHYROXINE SODIUM
     Indication: SUICIDAL IDEATION
     Dosage: UNK
     Route: 048
     Dates: start: 20200619, end: 20200619
  2. ATORVASTATIN [Suspect]
     Active Substance: ATORVASTATIN
     Indication: SUICIDAL IDEATION
     Dosage: UNK
     Route: 048
     Dates: start: 20200619, end: 20200619
  3. GUANFACIN 2MG RETARD [Suspect]
     Active Substance: GUANFACINE HYDROCHLORIDE
     Indication: SUICIDAL IDEATION
     Dosage: UNK
     Route: 048
     Dates: start: 20200619, end: 20200619
  4. ZONISAMID 100MG [Suspect]
     Active Substance: ZONISAMIDE
     Indication: SUICIDAL IDEATION
     Dosage: UNK
     Route: 048
     Dates: start: 20200619, end: 20200619
  5. RAMIPRIL 2,5MG [Suspect]
     Active Substance: RAMIPRIL
     Indication: SUICIDAL IDEATION
     Dosage: UNK
     Route: 048
     Dates: start: 20200619, end: 20200619
  6. TORASEMID 10MG [Suspect]
     Active Substance: TORSEMIDE
     Indication: SUICIDAL IDEATION
     Dosage: UNK
     Route: 048
     Dates: start: 20200619, end: 20200619

REACTIONS (10)
  - Depressed level of consciousness [Unknown]
  - Nausea [Unknown]
  - Hypotension [Unknown]
  - Intentional overdose [Unknown]
  - Lactic acidosis [Unknown]
  - Hypothermia [Unknown]
  - Toxicity to various agents [Unknown]
  - Arrhythmia [Unknown]
  - Vomiting [Unknown]
  - General physical health deterioration [Unknown]

NARRATIVE: CASE EVENT DATE: 20200619
